FAERS Safety Report 7883830-3 (Version None)
Quarter: 2011Q4

REPORT INFORMATION
  Report Type: 
  Country: None (occurrence: None)
  Receive Date: 20111102
  Receipt Date: 20111028
  Transmission Date: 20120403
  Serious: Yes (Other)
  Sender: FDA-Public Use
  Company Number: US-ACTELION-A-US2011-44816

PATIENT

DRUGS (4)
  1. TRACLEER [Suspect]
     Route: 048
  2. IRON [Concomitant]
     Dosage: 325 MG, TID
  3. LASIX [Concomitant]
     Dosage: 40 MG, OD
  4. TRACLEER [Suspect]
     Indication: PULMONARY ARTERIAL HYPERTENSION
     Dosage: UNK MG, UNK
     Route: 048
     Dates: start: 20101103

REACTIONS (5)
  - PULMONARY THROMBOSIS [None]
  - SINUS CONGESTION [None]
  - DYSPNOEA [None]
  - ANAEMIA [None]
  - OEDEMA [None]
